FAERS Safety Report 10185800 (Version 2)
Quarter: 2014Q2

REPORT INFORMATION
  Report Type: Report from Study
  Country: IN (occurrence: IN)
  Receive Date: 20140521
  Receipt Date: 20140521
  Transmission Date: 20141212
  Serious: Yes (Death)
  Sender: FDA-Public Use
  Company Number: IN-INCYTE CORPORATION-2014IN000986

PATIENT
  Age: 77 Year
  Sex: 0

DRUGS (3)
  1. JAKAVI [Suspect]
     Indication: MYELOFIBROSIS
     Dosage: 20 MG, DAILY
     Route: 048
     Dates: start: 20140113
  2. JAKAVI [Suspect]
     Dosage: 15 MG, BID
     Route: 065
  3. JAKAVI [Suspect]
     Dosage: 20 MG, DAILY

REACTIONS (2)
  - Death [Fatal]
  - Platelet count decreased [Recovered/Resolved]
